FAERS Safety Report 5804788-4 (Version None)
Quarter: 2008Q3

REPORT INFORMATION
  Report Type: 
  Country: None (occurrence: None)
  Receive Date: 20080709
  Receipt Date: 20080701
  Transmission Date: 20090109
  Serious: Yes (Hospitalization, Other)
  Sender: FDA-Public Use
  Company Number: US-ABBOTT-06P-163-0338961-00

PATIENT
  Sex: Female
  Weight: 71.732 kg

DRUGS (11)
  1. HUMIRA [Suspect]
     Indication: RHEUMATOID ARTHRITIS
     Route: 058
     Dates: start: 20040615, end: 20060101
  2. HUMIRA [Suspect]
     Route: 058
     Dates: start: 20060101
  3. ATENOLOL [Concomitant]
     Indication: DRUG USE FOR UNKNOWN INDICATION
     Route: 048
  4. ETODOLAC [Concomitant]
     Indication: DRUG USE FOR UNKNOWN INDICATION
     Route: 048
     Dates: start: 20040101
  5. LISINOPRIL [Concomitant]
     Indication: DRUG USE FOR UNKNOWN INDICATION
     Route: 048
  6. PROPYPHENE [Concomitant]
     Indication: PAIN
     Route: 048
  7. METHYLPREDNISOLONE [Concomitant]
     Indication: DRUG USE FOR UNKNOWN INDICATION
     Dates: start: 20040101
  8. JUICE PLUS ORCHARD BLEND [Concomitant]
     Indication: DRUG USE FOR UNKNOWN INDICATION
     Route: 048
  9. JUICE PLUS GARDEN BLEND [Concomitant]
     Indication: DRUG USE FOR UNKNOWN INDICATION
     Route: 048
  10. PREDNISONE TAB [Concomitant]
     Indication: DRUG USE FOR UNKNOWN INDICATION
     Route: 048
  11. METHOTREXATE [Concomitant]
     Indication: RHEUMATOID ARTHRITIS

REACTIONS (15)
  - ARTHRALGIA [None]
  - CHOLELITHIASIS [None]
  - COUGH [None]
  - DRUG INEFFECTIVE [None]
  - DYSPNOEA [None]
  - GALLBLADDER DISORDER [None]
  - HEPATIC CYST [None]
  - INCREASED TENDENCY TO BRUISE [None]
  - INJECTION SITE ERYTHEMA [None]
  - INJECTION SITE PRURITUS [None]
  - JOINT SWELLING [None]
  - PAIN [None]
  - PULMONARY OEDEMA [None]
  - PYREXIA [None]
  - SKIN CANCER [None]
